FAERS Safety Report 8758942 (Version 1)
Quarter: 2012Q4

REPORT INFORMATION
  Report Type: 
  Country: US (occurrence: US)
  Receive Date: 20120829
  Receipt Date: 20120829
  Transmission Date: 20130627
  Serious: Yes (Other)
  Sender: FDA-Public Use
  Company Number: US-JNJFOC-20120701048

PATIENT
  Age: 10 None
  Sex: Male
  Weight: 45.36 kg

DRUGS (5)
  1. CONCERTA [Suspect]
     Indication: ATTENTION DEFICIT/HYPERACTIVITY DISORDER
     Route: 048
  2. CONCERTA [Suspect]
     Indication: ATTENTION DEFICIT/HYPERACTIVITY DISORDER
     Route: 048
  3. CONCERTA [Suspect]
     Indication: ATTENTION DEFICIT/HYPERACTIVITY DISORDER
     Route: 048
     Dates: start: 201010, end: 2012
  4. CONCERTA [Suspect]
     Indication: ATTENTION DEFICIT/HYPERACTIVITY DISORDER
     Route: 048
     Dates: start: 2012, end: 20120625
  5. RISPERDAL [Suspect]
     Indication: AUTISM
     Route: 048

REACTIONS (11)
  - Self injurious behaviour [Not Recovered/Not Resolved]
  - Glucose tolerance impaired [Unknown]
  - Migraine [Not Recovered/Not Resolved]
  - Feeling abnormal [Recovered/Resolved]
  - Prescribed overdose [Recovered/Resolved]
  - Insomnia [Not Recovered/Not Resolved]
  - Drug effect decreased [Recovered/Resolved]
  - Nausea [Not Recovered/Not Resolved]
  - Eating disorder [Recovered/Resolved]
  - Feeling hot [Not Recovered/Not Resolved]
  - Hypersomnia [Not Recovered/Not Resolved]
